FAERS Safety Report 18626026 (Version 1)
Quarter: 2020Q4

REPORT INFORMATION
  Report Type: Spontaneous
  Country: IT (occurrence: IT)
  Receive Date: 20201217
  Receipt Date: 20201217
  Transmission Date: 20210114
  Serious: Yes (Other)
  Sender: FDA-Public Use
  Company Number: IT-009507513-2012ITA006662

PATIENT
  Age: 33 Year
  Sex: Female

DRUGS (1)
  1. LETERMOVIR [Suspect]
     Active Substance: LETERMOVIR
     Dosage: UNK
     Route: 048

REACTIONS (3)
  - Treatment failure [Unknown]
  - Malabsorption [Unknown]
  - Cytomegalovirus infection reactivation [Unknown]
